FAERS Safety Report 7670783-6 (Version None)
Quarter: 2011Q3

REPORT INFORMATION
  Report Type: 
  Country: None (occurrence: None)
  Receive Date: 20110809
  Receipt Date: 20110801
  Transmission Date: 20111222
  Serious: Yes (Hospitalization)
  Sender: FDA-Public Use
  Company Number: US-BRISTOL-MYERS SQUIBB COMPANY-15938293

PATIENT
  Age: 73 Year
  Sex: Female

DRUGS (3)
  1. CLOPIDOGREL BISULFATE [Suspect]
  2. ASPIRIN [Suspect]
  3. WARFARIN SODIUM [Suspect]

REACTIONS (2)
  - NEUROPATHY PERIPHERAL [None]
  - MUSCLE HAEMORRHAGE [None]
